FAERS Safety Report 23978904 (Version 1)
Quarter: 2024Q2

REPORT INFORMATION
  Report Type: Spontaneous
  Country: CA (occurrence: CA)
  Receive Date: 20240615
  Receipt Date: 20240615
  Transmission Date: 20240716
  Serious: Yes (Hospitalization, Other)
  Sender: FDA-Public Use
  Company Number: CA-UNITED THERAPEUTICS-UNT-2024-016472

PATIENT
  Age: 59 Year
  Sex: Female

DRUGS (1)
  1. REMODULIN [Suspect]
     Active Substance: TREPROSTINIL
     Indication: Pulmonary arterial hypertension
     Dosage: UNK, CONTINUING
     Route: 041

REACTIONS (7)
  - Shock [Unknown]
  - Feeling of body temperature change [Unknown]
  - Sepsis [Recovering/Resolving]
  - Vein collapse [Recovering/Resolving]
  - Dehydration [Recovering/Resolving]
  - Confusional state [Recovered/Resolved]
  - Dermatitis contact [Not Recovered/Not Resolved]

NARRATIVE: CASE EVENT DATE: 20240605
